FAERS Safety Report 5042560-6 (Version None)
Quarter: 2006Q3

REPORT INFORMATION
  Report Type: 
  Country: None (occurrence: None)
  Receive Date: 20060705
  Receipt Date: 20060629
  Transmission Date: 20061208
  Serious: Yes (Death, Hospitalization, Other)
  Sender: FDA-Public Use
  Company Number: PHEH2006US08446

PATIENT
  Sex: Female

DRUGS (4)
  1. PREMPRO [Suspect]
  2. PROMETRIUM [Suspect]
  3. ORTHO-PREFEST [Suspect]
  4. COMBIPATCH [Suspect]
     Indication: HORMONE REPLACEMENT THERAPY
     Route: 062

REACTIONS (4)
  - BREAST CANCER [None]
  - BREAST OPERATION [None]
  - RADIATION SKIN INJURY [None]
  - STAPHYLOCOCCAL INFECTION [None]
